FAERS Safety Report 8412459-3 (Version None)
Quarter: 2012Q2

REPORT INFORMATION
  Report Type: 
  Country: None (occurrence: None)
  Receive Date: 20120605
  Receipt Date: 20120518
  Transmission Date: 20120825
  Serious: No
  Sender: FDA-Public Use
  Company Number: US-AMGEN-USASP2012031456

PATIENT
  Sex: Male

DRUGS (1)
  1. ENBREL [Suspect]
     Indication: BACK PAIN
     Dosage: UNK
     Dates: start: 20111001, end: 20111001

REACTIONS (2)
  - DEMENTIA ALZHEIMER'S TYPE [None]
  - DRUG INEFFECTIVE [None]
